FAERS Safety Report 8213618-5 (Version None)
Quarter: 2012Q1

REPORT INFORMATION
  Report Type: 
  Country: None (occurrence: None)
  Receive Date: 20120315
  Receipt Date: 20120308
  Transmission Date: 20120608
  Serious: No
  Sender: FDA-Public Use
  Company Number: NL-ASTRAZENECA-2012SE04740

PATIENT
  Age: 5105 Day
  Sex: Female
  Weight: 48 kg

DRUGS (1)
  1. CRESTOR [Suspect]
     Indication: TYPE IIA HYPERLIPIDAEMIA
     Route: 048
     Dates: start: 20120106, end: 20120119

REACTIONS (5)
  - VOMITING [None]
  - GASTROOESOPHAGEAL REFLUX DISEASE [None]
  - DYSPEPSIA [None]
  - ABDOMINAL PAIN UPPER [None]
  - PAIN [None]
